FAERS Safety Report 7769630-3 (Version None)
Quarter: 2011Q3

REPORT INFORMATION
  Report Type: 
  Country: None (occurrence: None)
  Receive Date: 20110922
  Receipt Date: 20110112
  Transmission Date: 20111222
  Serious: No
  Sender: FDA-Public Use
  Company Number: US-ASTRAZENECA-2011SE02305

PATIENT
  Age: 45 Year
  Sex: Female

DRUGS (3)
  1. DEPAKOTE [Concomitant]
  2. XANAX [Concomitant]
  3. SEROQUEL [Suspect]
     Indication: BIPOLAR DISORDER
     Route: 048

REACTIONS (3)
  - AMNESIA [None]
  - MOOD SWINGS [None]
  - DRUG DOSE OMISSION [None]
